FAERS Safety Report 5139505-7 (Version None)
Quarter: 2006Q4

REPORT INFORMATION
  Report Type: 
  Country: None (occurrence: None)
  Receive Date: 20061030
  Receipt Date: 20050613
  Transmission Date: 20070319
  Serious: Yes (Death)
  Sender: FDA-Public Use
  Company Number: NL-BOEHRINGER INGELHEIM PHARMACEUTICALS, INC.-2005-NL-00153NL

PATIENT
  Sex: Male
  Weight: 80 kg

DRUGS (2)
  1. MICARDIS [Suspect]
     Indication: HYPERTENSION
     Route: 048
     Dates: start: 20040928
  2. NEXIUM [Concomitant]
     Indication: LIMB DISCOMFORT
     Dates: start: 20040601

REACTIONS (1)
  - SUDDEN CARDIAC DEATH [None]
